FAERS Safety Report 11039554 (Version 1)
Quarter: 2015Q2

REPORT INFORMATION
  Report Type: Spontaneous
  Country: US (occurrence: US)
  Receive Date: 20150416
  Receipt Date: 20150416
  Transmission Date: 20150821
  Serious: No
  Sender: FDA-Public Use
  Company Number: US-GLAXOSMITHKLINE-US2015GSK033473

PATIENT
  Sex: Female

DRUGS (1)
  1. SUMATRIPTAN NASAL SPRAY [Suspect]
     Active Substance: SUMATRIPTAN
     Indication: PRODUCT USED FOR UNKNOWN INDICATION
     Dosage: 1 DF, U
     Route: 045

REACTIONS (3)
  - Cough [Unknown]
  - Nausea [Unknown]
  - Migraine [Unknown]
